FAERS Safety Report 5833889-X (Version None)
Quarter: 2008Q3

REPORT INFORMATION
  Report Type: 
  Country: None (occurrence: None)
  Receive Date: 20080805
  Receipt Date: 20080730
  Transmission Date: 20090109
  Serious: Yes (Other)
  Sender: FDA-Public Use
  Company Number: A0740291A

PATIENT
  Age: 42 Year
  Sex: Female

DRUGS (3)
  1. LOVAZA [Suspect]
     Indication: BLOOD CHOLESTEROL INCREASED
     Dosage: 1G PER DAY
     Route: 048
     Dates: start: 20040101
  2. SYNTHROID [Concomitant]
  3. WARFARIN SODIUM [Concomitant]
     Dates: start: 20080701

REACTIONS (2)
  - THROMBOSIS [None]
  - WEIGHT INCREASED [None]
